FAERS Safety Report 5587781-9 (Version None)
Quarter: 2007Q4

REPORT INFORMATION
  Report Type: 
  Country: None (occurrence: None)
  Receive Date: 20071205
  Receipt Date: 20070425
  Transmission Date: 20080405
  Serious: Yes (Hospitalization)
  Sender: FDA-Public Use
  Company Number: E3810-00870-SPO-US

PATIENT
  Age: 65 Year
  Sex: Female

DRUGS (7)
  1. ACIPHEX [Suspect]
     Dosage: 20 MG, ORAL
     Route: 048
  2. METAMUCIL-2 [Concomitant]
  3. ABILIFY [Concomitant]
  4. DEPOKENE (VALPROATE SODIUM) [Concomitant]
  5. CITRICAL (CALCIUM CITRATE) [Concomitant]
  6. VITAMIN D [Concomitant]
  7. ROZERUM [Concomitant]

REACTIONS (1)
  - NEPHRITIS INTERSTITIAL [None]
